FAERS Safety Report 4780802-2 (Version None)
Quarter: 2005Q3

REPORT INFORMATION
  Report Type: 
  Country: None (occurrence: None)
  Receive Date: 20050914
  Receipt Date: 20040803
  Transmission Date: 20060218
  Serious: Yes (Hospitalization)
  Sender: FDA-Public Use
  Company Number: 163-20785-04070204

PATIENT
  Age: 72 Year
  Sex: Female

DRUGS (16)
  1. THALOMID [Suspect]
     Indication: MULTIPLE MYELOMA
     Dosage: 200 MG, DAILY, ORAL ; 200 MG, DAILY, ORAL - ONE DOSE
     Route: 048
     Dates: start: 20040501, end: 20040509
  2. ACETAMINOPHEN [Concomitant]
  3. DEXAMETHASONE [Concomitant]
  4. FUROSEMIDE [Concomitant]
  5. FENTANYL [Concomitant]
  6. SUCRALFATE [Concomitant]
  7. GUAIFENESIN (GUAIFENESIN) [Concomitant]
  8. VICODIN [Concomitant]
  9. HEPARIN [Concomitant]
  10. MAGNESIUM OXIDE (MAGNESIUM OXIDE) [Concomitant]
  11. LASIX [Concomitant]
  12. PANTOPRAZOLE SODIUM [Concomitant]
  13. ALBUTEROL [Concomitant]
  14. INSULIN HUMULIN (INSULIN HUMAN) [Concomitant]
  15. FERROUS SULFATE TAB [Concomitant]
  16. ZOMETA [Concomitant]

REACTIONS (5)
  - DYSPNOEA [None]
  - ILEUS PARALYTIC [None]
  - PYREXIA [None]
  - SOMNOLENCE [None]
  - TACHYCARDIA [None]
